FAERS Safety Report 23383473 (Version 1)
Quarter: 2024Q1

REPORT INFORMATION
  Report Type: Spontaneous
  Country: CN (occurrence: CN)
  Receive Date: 20240109
  Receipt Date: 20240109
  Transmission Date: 20240410
  Serious: Yes (Hospitalization)
  Sender: FDA-Public Use
  Company Number: CN-002147023-NVSC2023CN277325

PATIENT
  Age: 60 Year
  Sex: Male
  Weight: 72.8 kg

DRUGS (3)
  1. MYFORTIC [Suspect]
     Active Substance: MYCOPHENOLATE SODIUM
     Indication: Prophylaxis
     Dosage: 360 MG, BID (ANTI-REJECTION)
     Route: 045
     Dates: start: 20231114, end: 20231224
  2. GANCICLOVIR [Suspect]
     Active Substance: GANCICLOVIR
     Indication: Antiviral treatment
     Dosage: 0.1 G, BID
     Route: 041
     Dates: start: 20231206, end: 20231218
  3. GANCICLOVIR [Suspect]
     Active Substance: GANCICLOVIR
     Indication: Infection

REACTIONS (4)
  - Myelosuppression [Recovering/Resolving]
  - White blood cell count decreased [Recovering/Resolving]
  - Platelet count decreased [Recovering/Resolving]
  - Cytomegalovirus infection [Unknown]

NARRATIVE: CASE EVENT DATE: 20231212
